FAERS Safety Report 8894255 (Version 7)
Quarter: 2013Q4

REPORT INFORMATION
  Report Type: Spontaneous
  Country: US (occurrence: US)
  Receive Date: 20121108
  Receipt Date: 20131113
  Transmission Date: 20140711
  Serious: Yes (Hospitalization, Disabling, Other)
  Sender: FDA-Public Use
  Company Number: US-009507513-1211USA001620

PATIENT
  Sex: Female
  Weight: 75.28 kg

DRUGS (12)
  1. FOSAMAX [Suspect]
     Indication: OSTEOPOROSIS
     Dosage: 70 MG, QW
     Route: 048
     Dates: start: 20020320, end: 2011
  2. FOSAMAX [Suspect]
     Indication: FRACTURE
  3. FOSAMAX PLUS D [Suspect]
     Indication: FRACTURE
     Dosage: 70MG/5600IU, QW
     Route: 048
     Dates: start: 20061030, end: 200905
  4. ALENDRONATE SODIUM [Suspect]
     Dosage: 70 MG, UNK
     Route: 048
     Dates: start: 20090921, end: 201002
  5. ALENDRONATE SODIUM [Suspect]
     Dosage: 70 MG, UNK
     Route: 048
     Dates: start: 20100222, end: 201006
  6. ALENDRONATE SODIUM [Suspect]
     Dosage: 70 MG, UNK
     Route: 048
     Dates: start: 20100602, end: 201009
  7. ALENDRONATE SODIUM [Suspect]
     Dosage: 70 MG, UNK
     Route: 048
     Dates: start: 20101103, end: 201105
  8. CENTRUM SILVER [Concomitant]
     Dosage: UNK UNK, QD
     Dates: start: 1988
  9. VITAMIN D (UNSPECIFIED) [Concomitant]
     Dosage: UNK
     Dates: start: 1988
  10. CALCIUM (UNSPECIFIED) [Concomitant]
     Dosage: 1200 MG, QD
     Dates: start: 1988
  11. CORTICOSTEROIDS (UNSPECIFIED) [Concomitant]
     Dosage: UNK
     Dates: start: 2000, end: 2012
  12. HORMONES (UNSPECIFIED) [Concomitant]
     Dosage: UNK
     Dates: start: 1997

REACTIONS (50)
  - Femur fracture [Not Recovered/Not Resolved]
  - Fracture delayed union [Not Recovered/Not Resolved]
  - Open reduction of fracture [Unknown]
  - Intramedullary rod insertion [Unknown]
  - Open reduction of fracture [Unknown]
  - Spinal fusion surgery [Unknown]
  - Bone graft [Unknown]
  - Intramedullary rod insertion [Unknown]
  - Bone graft [Unknown]
  - Bone graft [Unknown]
  - Foot fracture [Unknown]
  - Limb asymmetry [Not Recovered/Not Resolved]
  - Fall [Unknown]
  - Low turnover osteopathy [Unknown]
  - Patella fracture [Not Recovered/Not Resolved]
  - Post procedural infection [Unknown]
  - Device breakage [Unknown]
  - Device breakage [Unknown]
  - Bronchitis [Not Recovered/Not Resolved]
  - Joint injury [Unknown]
  - Dermatitis contact [Not Recovered/Not Resolved]
  - Visual acuity reduced [Unknown]
  - Seasonal allergy [Not Recovered/Not Resolved]
  - Migraine [Not Recovered/Not Resolved]
  - Paranasal sinus hypersecretion [Unknown]
  - Sinus headache [Unknown]
  - Tension headache [Unknown]
  - Hyperlipidaemia [Unknown]
  - Hypertension [Unknown]
  - Diabetes mellitus [Not Recovered/Not Resolved]
  - Hypercholesterolaemia [Not Recovered/Not Resolved]
  - Osteoarthritis [Not Recovered/Not Resolved]
  - Rhinitis allergic [Unknown]
  - Cyst [Unknown]
  - Bursitis [Unknown]
  - Muscle strain [Unknown]
  - Muscle strain [Unknown]
  - Rotator cuff syndrome [Unknown]
  - Fall [Unknown]
  - Agoraphobia [Not Recovered/Not Resolved]
  - Anxiety [Not Recovered/Not Resolved]
  - Anaemia [Not Recovered/Not Resolved]
  - Pain in extremity [Unknown]
  - Muscle spasms [Not Recovered/Not Resolved]
  - Constipation [Unknown]
  - Hypocalcaemia [Unknown]
  - Myalgia [Not Recovered/Not Resolved]
  - Arthralgia [Unknown]
  - Bone pain [Unknown]
  - Off label use [Unknown]
